FAERS Safety Report 10174299 (Version 2)
Quarter: 2014Q2

REPORT INFORMATION
  Report Type: Spontaneous
  Country: JP (occurrence: JP)
  Receive Date: 20140515
  Receipt Date: 20140626
  Transmission Date: 20141212
  Serious: Yes (Disabling)
  Sender: FDA-Public Use
  Company Number: JP-PFIZER INC-2014132271

PATIENT
  Age: 77 Year
  Sex: Male

DRUGS (3)
  1. JZOLOFT [Suspect]
     Indication: DEPRESSION
     Dosage: 50 MG, DAILY
     Route: 048
     Dates: start: 20131126, end: 20140616
  2. DEPAS [Concomitant]
     Dosage: UNK
     Route: 048
  3. LENDORMIN [Concomitant]
     Dosage: UNK
     Route: 048

REACTIONS (2)
  - Sick sinus syndrome [Not Recovered/Not Resolved]
  - Electrocardiogram QT prolonged [Not Recovered/Not Resolved]
